FAERS Safety Report 19518969 (Version 1)
Quarter: 2021Q3

REPORT INFORMATION
  Report Type: Spontaneous
  Country: US (occurrence: US)
  Receive Date: 20210711
  Receipt Date: 20210711
  Transmission Date: 20211014
  Serious: Yes (Disabling)
  Sender: FDA-Public Use
  Company Number: None

PATIENT
  Age: 42 Year
  Sex: Female
  Weight: 88.65 kg

DRUGS (13)
  1. MULTI CHILDREN^S VITAMINS [Concomitant]
  2. E [Concomitant]
  3. CALCIUM [Concomitant]
     Active Substance: CALCIUM
  4. NUVARING [Suspect]
     Active Substance: ETHINYL ESTRADIOL\ETONOGESTREL
     Indication: INFERTILITY
     Dates: start: 20210706, end: 20210707
  5. ADDERALL [Concomitant]
     Active Substance: AMPHETAMINE ASPARTATE\AMPHETAMINE SULFATE\DEXTROAMPHETAMINE SACCHARATE\DEXTROAMPHETAMINE SULFATE
  6. PROZAC [Concomitant]
     Active Substance: FLUOXETINE HYDROCHLORIDE
  7. SAMBUCCA KIDS STRENGTH VITAMIN [Concomitant]
  8. BUSPAR [Concomitant]
     Active Substance: BUSPIRONE HYDROCHLORIDE
  9. D [Concomitant]
  10. FOLIC ACID. [Concomitant]
     Active Substance: FOLIC ACID
  11. ABILIFY [Concomitant]
     Active Substance: ARIPIPRAZOLE
  12. CLOMID [Concomitant]
     Active Substance: CLOMIPHENE CITRATE
  13. PROBIOTIC [Concomitant]
     Active Substance: PROBIOTICS NOS

REACTIONS (6)
  - Musculoskeletal stiffness [None]
  - Peripheral swelling [None]
  - Cystitis [None]
  - Pruritus [None]
  - Scratch [None]
  - Streptococcal infection [None]

NARRATIVE: CASE EVENT DATE: 20210706
